FAERS Safety Report 6734574-2 (Version None)
Quarter: 2010Q2

REPORT INFORMATION
  Report Type: 
  Country: None (occurrence: None)
  Receive Date: 20100520
  Receipt Date: 20100506
  Transmission Date: 20101027
  Serious: No
  Sender: FDA-Public Use
  Company Number: US-ALLERGAN-1005033US

PATIENT
  Age: 89 Year
  Sex: Male
  Weight: 83.9 kg

DRUGS (5)
  1. SANCTURA XR [Suspect]
     Indication: POLLAKIURIA
     Dosage: UNK
     Route: 048
     Dates: start: 20080101, end: 20091101
  2. FLOMAX [Concomitant]
     Indication: HYPERTONIC BLADDER
     Dosage: UNK
     Dates: start: 20050101
  3. TOVIAZ [Concomitant]
     Indication: HYPERTONIC BLADDER
     Dosage: UNK
     Dates: start: 20091101
  4. METFORMIN HYDROCHLORIDE [Concomitant]
     Indication: BLOOD GLUCOSE ABNORMAL
     Dosage: 500 MG, UNK
     Dates: start: 20050101
  5. LOVASTATIN [Concomitant]
     Indication: BLOOD CHOLESTEROL INCREASED
     Dosage: 20 MG, UNK
     Dates: start: 20080101

REACTIONS (1)
  - DRY MOUTH [None]
